FAERS Safety Report 9321171 (Version 2)
Quarter: 2013Q3

REPORT INFORMATION
  Report Type: Report from Study
  Country: JP (occurrence: JP)
  Receive Date: 20130531
  Receipt Date: 20130901
  Transmission Date: 20140515
  Serious: Yes (Hospitalization)
  Sender: FDA-Public Use
  Company Number: JP-009507513-1305JPN015378

PATIENT
  Age: 35 Year
  Sex: Male

DRUGS (2)
  1. ISENTRESS TABLETS 400MG [Suspect]
     Indication: HIV INFECTION
     Dosage: 800 MG, QD, DIVIDED DOSE FREQUENCY UNKNOWN
     Route: 048
     Dates: start: 20111104, end: 20130216
  2. TRUVADA [Suspect]
     Indication: HIV INFECTION
     Dosage: 1 DF, QD, DIVIDED DOSE FREQUENCY UNKNOWN
     Route: 048
     Dates: start: 20111104, end: 20130216

REACTIONS (2)
  - Pancreatitis acute [Recovered/Resolved]
  - Pancreatic pseudocyst [Recovered/Resolved]
